FAERS Safety Report 7277534-8 (Version None)
Quarter: 2011Q1

REPORT INFORMATION
  Report Type: 
  Country: None (occurrence: None)
  Receive Date: 20110207
  Receipt Date: 20110128
  Transmission Date: 20110831
  Serious: Yes (Other)
  Sender: FDA-Public Use
  Company Number: US-JNJFOC-20100805154

PATIENT
  Sex: Female

DRUGS (3)
  1. LEVAQUIN [Suspect]
     Indication: EAR PAIN
     Route: 048
  2. LEVAQUIN [Suspect]
     Indication: SINUS DISORDER
     Route: 048
  3. LEVAQUIN [Suspect]
     Indication: EAR DISCOMFORT
     Route: 048

REACTIONS (2)
  - TENDON RUPTURE [None]
  - OSTEOARTHRITIS [None]
